FAERS Safety Report 9471345 (Version 1)
Quarter: 2013Q3

REPORT INFORMATION
  Report Type: Spontaneous
  Country: US (occurrence: US)
  Receive Date: 20130822
  Receipt Date: 20130822
  Transmission Date: 20140515
  Serious: No
  Sender: FDA-Public Use
  Company Number: US-TEVA-426168USA

PATIENT
  Age: 48 Year
  Sex: Female
  Weight: 77.63 kg

DRUGS (3)
  1. AZILECT [Suspect]
     Indication: PARKINSON^S DISEASE
     Dates: start: 20130809
  2. COPAXONE [Suspect]
     Indication: MULTIPLE SCLEROSIS
  3. ARICEPT [Concomitant]
     Indication: MEMORY IMPAIRMENT

REACTIONS (1)
  - Urinary incontinence [Not Recovered/Not Resolved]
